FAERS Safety Report 20751855 (Version 8)
Quarter: 2022Q4

REPORT INFORMATION
  Report Type: Report from Study
  Country: NL (occurrence: None)
  Receive Date: 20220426
  Receipt Date: 20221128
  Transmission Date: 20230113
  Serious: Yes (Hospitalization)
  Sender: FDA-Public Use
  Company Number: NL-ROCHE-3081320

PATIENT
  Age: 70 Year
  Sex: Female
  Weight: 58.3 kg

DRUGS (4)
  1. INVESTIGATIONAL PRODUCT [Suspect]
     Active Substance: INVESTIGATIONAL PRODUCT
     Indication: Breast cancer metastatic
     Dosage: ON 11/APR/2022, FROM 05:02 PM TO 06:04 PM, SHE RECEIVED MOST RECENT DOSE 3 MG STUDY DRUG PRIOR TO AE
     Route: 042
     Dates: start: 20220407
  2. ATEZOLIZUMAB [Suspect]
     Active Substance: ATEZOLIZUMAB
     Indication: Breast cancer metastatic
     Dosage: ON 07/APR/2022, AT 01:17 PM SHE RECEIVED MOST RECENT DOSE 1200 MG OF STUDY DRUG PRIOR TO AE/SAE.?ON
     Route: 041
     Dates: start: 20220407
  3. CLEMASTINE [Concomitant]
     Active Substance: CLEMASTINE
     Route: 042
     Dates: start: 20220721, end: 20220721
  4. CLEMASTINE [Concomitant]
     Active Substance: CLEMASTINE
     Route: 042
     Dates: start: 20220725, end: 20220725

REACTIONS (2)
  - Immune-mediated pancreatitis [Recovered/Resolved]
  - Cytokine release syndrome [Recovered/Resolved]

NARRATIVE: CASE EVENT DATE: 20220411
